FAERS Safety Report 8286629-1 (Version None)
Quarter: 2012Q2

REPORT INFORMATION
  Report Type: 
  Country: None (occurrence: None)
  Receive Date: 20120411
  Receipt Date: 20120328
  Transmission Date: 20120825
  Serious: Yes (Life-Threatening, Other)
  Sender: FDA-Public Use
  Company Number: 2012MA004393

PATIENT
  Age: 3 Month
  Sex: Female

DRUGS (3)
  1. DOMPERIDONE [Concomitant]
  2. GAVISCON [Concomitant]
  3. RANITIDINE [Suspect]
     Indication: GASTROOESOPHAGEAL REFLUX DISEASE
     Dosage: 4 MG; TID; PO
     Route: 048
     Dates: start: 20111208, end: 20111215

REACTIONS (2)
  - SCREAMING [None]
  - MUSCLE TWITCHING [None]
